FAERS Safety Report 13571778 (Version 1)
Quarter: 2017Q2

REPORT INFORMATION
  Report Type: Spontaneous
  Country: US (occurrence: US)
  Receive Date: 20170522
  Receipt Date: 20170522
  Transmission Date: 20170830
  Serious: Yes (Life-Threatening, Other)
  Sender: FDA-Public Use
  Company Number: None

PATIENT
  Age: 67 Year
  Sex: Male
  Weight: 71.67 kg

DRUGS (1)
  1. FLUORESCEIN [Suspect]
     Active Substance: FLUORESCEIN
     Indication: ANGIOGRAM
     Route: 042
     Dates: start: 20170125, end: 20170125

REACTIONS (7)
  - Dizziness [None]
  - Syncope [None]
  - Respiratory depression [None]
  - Feeling hot [None]
  - Rash [None]
  - Unresponsive to stimuli [None]
  - Hypotension [None]

NARRATIVE: CASE EVENT DATE: 20170125
